FAERS Safety Report 12057206 (Version 1)
Quarter: 2016Q1

REPORT INFORMATION
  Report Type: Report from Study
  Country: US (occurrence: US)
  Receive Date: 20160210
  Receipt Date: 20160210
  Transmission Date: 20160526
  Serious: Yes (Life-Threatening, Hospitalization)
  Sender: FDA-Public Use
  Company Number: US-ROCHE-1704887

PATIENT
  Age: 50 Year
  Sex: Male

DRUGS (4)
  1. BEVACIZUMAB [Suspect]
     Active Substance: BEVACIZUMAB
     Indication: HEAD AND NECK CANCER METASTATIC
     Dosage: BEVACIZUMAB 10 MG/KG/DAY IV BOLUS ON DAYS 1 AND 15
     Route: 040
  2. ERLOTINIB [Suspect]
     Active Substance: ERLOTINIB
     Indication: HEAD AND NECK CANCER METASTATIC
     Dosage: 50 MG/DAY PO QD ON DAYS 1-28
     Route: 048
  3. CETUXIMAB [Suspect]
     Active Substance: CETUXIMAB
     Dosage: 250 MG/M2 IV OVER 60 MIN ON DAYS 8, 15, AND 22
     Route: 042
  4. CETUXIMAB [Suspect]
     Active Substance: CETUXIMAB
     Indication: HEAD AND NECK CANCER METASTATIC
     Dosage: 400 MG/M2 IV OVER 120 MIN ON DAY 1
     Route: 042

REACTIONS (3)
  - Hypokalaemia [Unknown]
  - Hypomagnesaemia [Unknown]
  - Fracture [Unknown]

NARRATIVE: CASE EVENT DATE: 20061112
